FAERS Safety Report 4314975-2 (Version None)
Quarter: 2004Q1

REPORT INFORMATION
  Report Type: 
  Country: None (occurrence: None)
  Receive Date: 20040309
  Receipt Date: 20040225
  Transmission Date: 20041129
  Serious: Yes (Other)
  Sender: FDA-Public Use
  Company Number: EWC040338235

PATIENT
  Age: 11 Year
  Sex: Male
  Weight: 30 kg

DRUGS (1)
  1. FLUOXETINE [Suspect]
     Dosage: 20 MG DAY
     Dates: start: 20031001

REACTIONS (2)
  - ENURESIS [None]
  - SUICIDAL IDEATION [None]
